FAERS Safety Report 14307684 (Version 5)
Quarter: 2025Q2

REPORT INFORMATION
  Report Type: Spontaneous
  Country: GB (occurrence: GB)
  Receive Date: 20171220
  Receipt Date: 20250527
  Transmission Date: 20250716
  Serious: Yes (Other)
  Sender: TORRENT PHARMA INC.
  Company Number: GB-TEVA-2017-GB-827612

PATIENT
  Age: 24 Year
  Sex: Male

DRUGS (3)
  1. RISPERIDONE [Suspect]
     Active Substance: RISPERIDONE
     Indication: Autism spectrum disorder
     Route: 065
  2. ABILIFY [Suspect]
     Active Substance: ARIPIPRAZOLE
     Indication: Autism spectrum disorder
     Route: 065
  3. METHYLPHENIDATE [Suspect]
     Active Substance: METHYLPHENIDATE
     Indication: Autism spectrum disorder
     Route: 065

REACTIONS (4)
  - Rash [Unknown]
  - Keratoconus [Unknown]
  - Dry eye [Unknown]
  - Product use in unapproved indication [Unknown]
